FAERS Safety Report 25952400 (Version 4)
Quarter: 2025Q4

REPORT INFORMATION
  Report Type: Report from Study
  Country: CA (occurrence: CA)
  Receive Date: 20251023
  Receipt Date: 20251114
  Transmission Date: 20260117
  Serious: Yes (Other)
  Sender: BIOCON
  Company Number: CA-MIMS-BCONMC-18913

PATIENT

DRUGS (5)
  1. HULIO [Suspect]
     Active Substance: ADALIMUMAB-FKJP
     Indication: Rheumatoid arthritis
     Dosage: 40 MILLIGRAM, QWEEK
     Route: 058
     Dates: start: 20221102
  2. HULIO [Suspect]
     Active Substance: ADALIMUMAB-FKJP
     Indication: Crohn^s disease
  3. HULIO [Suspect]
     Active Substance: ADALIMUMAB-FKJP
  4. HULIO [Suspect]
     Active Substance: ADALIMUMAB-FKJP
  5. HULIO [Suspect]
     Active Substance: ADALIMUMAB-FKJP

REACTIONS (2)
  - Colitis [Unknown]
  - Inflammation [Unknown]
